FAERS Safety Report 6081631-2 (Version None)
Quarter: 2009Q1

REPORT INFORMATION
  Report Type: 
  Country: None (occurrence: None)
  Receive Date: 20090213
  Receipt Date: 20090130
  Transmission Date: 20090719
  Serious: Yes (Other)
  Sender: FDA-Public Use
  Company Number: 2009AL000646

PATIENT
  Age: 31 Year
  Sex: Female

DRUGS (1)
  1. VENLAFAXINE HYDROCHLORIDE TABLETS, 37.5MG (ATLLC) (VENLAFAXINE HYDROCH [Suspect]
     Indication: DEPRESSION
     Dosage: 37.5 MG; PO
     Route: 048
     Dates: start: 20050101

REACTIONS (6)
  - BALANCE DISORDER [None]
  - CRYING [None]
  - HYPERHIDROSIS [None]
  - NIGHTMARE [None]
  - TREMOR [None]
  - WITHDRAWAL SYNDROME [None]
